FAERS Safety Report 12697056 (Version 1)
Quarter: 2016Q3

REPORT INFORMATION
  Report Type: Spontaneous
  Country: US (occurrence: None)
  Receive Date: 20160829
  Receipt Date: 20160829
  Transmission Date: 20161109
  Serious: Yes (Other)
  Sender: FDA-Public Use
  Company Number: None

PATIENT
  Age: 69 Year
  Sex: Female
  Weight: 66.23 kg

DRUGS (8)
  1. ATORVASTATIN [Concomitant]
     Active Substance: ATORVASTATIN
  2. OCUVITE [Concomitant]
     Active Substance: VITAMINS
  3. LISINOPRIL. [Concomitant]
     Active Substance: LISINOPRIL
  4. GLUCOSAMINE SULFATE/CHONDROITIN/MSM [Concomitant]
  5. FENOFIBRATE. [Concomitant]
     Active Substance: FENOFIBRATE
  6. FISH OIL [Concomitant]
     Active Substance: FISH OIL
  7. AMOXICILLIN CLAVICULANATE POTA, 875 MG AUROBINDO (INDIA FOR AURIBIDO PHA [Suspect]
     Active Substance: AMOXICILLIN\CLAVULANATE POTASSIUM
     Indication: SALIVARY DUCT OBSTRUCTION
     Dosage: 20 TABLET(S) EVERY 12 HOURS TAKEN BY MOUTH
     Route: 048
  8. UBIQUINOL [Concomitant]
     Active Substance: UBIQUINOL

REACTIONS (9)
  - Eye pruritus [None]
  - Eye irritation [None]
  - Nasal congestion [None]
  - Paranasal sinus discomfort [None]
  - Insomnia [None]
  - Sinus pain [None]
  - Somnolence [None]
  - Headache [None]
  - Decreased appetite [None]

NARRATIVE: CASE EVENT DATE: 20160824
